FAERS Safety Report 14282864 (Version 1)
Quarter: 2017Q4

REPORT INFORMATION
  Report Type: Spontaneous
  Country: US (occurrence: US)
  Receive Date: 20171213
  Receipt Date: 20171213
  Transmission Date: 20180321
  Serious: No
  Sender: FDA-Public Use
  Company Number: US-PERNIX THERAPEUTICS-2017PT000022

PATIENT
  Sex: Female

DRUGS (3)
  1. ATORVASTATIN                       /01326102/ [Concomitant]
     Active Substance: ATORVASTATIN
  2. HYDROCODONE BITARTRATE. [Suspect]
     Active Substance: HYDROCODONE BITARTRATE
     Indication: PAIN
     Dosage: UNK
  3. LYRICA [Suspect]
     Active Substance: PREGABALIN
     Indication: FIBROMYALGIA
     Dosage: UNK

REACTIONS (3)
  - Myalgia [Unknown]
  - Insomnia [Unknown]
  - Logorrhoea [Unknown]

NARRATIVE: CASE EVENT DATE: 20170111
